FAERS Safety Report 14901350 (Version 1)
Quarter: 2018Q2

REPORT INFORMATION
  Report Type: Spontaneous
  Country: US (occurrence: US)
  Receive Date: 20180516
  Receipt Date: 20180516
  Transmission Date: 20180711
  Serious: No
  Sender: FDA-Public Use
  Company Number: US-TEVA-2018-US-894165

PATIENT
  Age: 55 Year
  Sex: Male

DRUGS (1)
  1. CINQAIR [Suspect]
     Active Substance: RESLIZUMAB
     Dosage: 217 MG Q 4 WEEKS IV
     Route: 042

REACTIONS (2)
  - Fatigue [Unknown]
  - Muscle spasms [Unknown]
